FAERS Safety Report 19733980 (Version 1)
Quarter: 2021Q3

REPORT INFORMATION
  Report Type: Spontaneous
  Country: US (occurrence: US)
  Receive Date: 20210824
  Receipt Date: 20210824
  Transmission Date: 20211014
  Serious: No
  Sender: FDA-Public Use
  Company Number: US-AUROBINDO-AUR-APL-2021-014936

PATIENT
  Age: 81 Year
  Sex: Female

DRUGS (1)
  1. METHENAMINE HIPPURATE TABLET USP 1G [Suspect]
     Active Substance: METHENAMINE HIPPURATE
     Indication: PRODUCT USED FOR UNKNOWN INDICATION
     Dosage: UNK
     Route: 065

REACTIONS (5)
  - Product colour issue [Unknown]
  - Illness [Unknown]
  - Drug ineffective [Unknown]
  - Manufacturing materials issue [Unknown]
  - Product physical issue [Unknown]
